FAERS Safety Report 15014151 (Version 1)
Quarter: 2018Q2

REPORT INFORMATION
  Report Type: Other
  Country: GB (occurrence: GB)
  Receive Date: 20180615
  Receipt Date: 20180615
  Transmission Date: 20180711
  Serious: No
  Sender: FDA-Public Use
  Company Number: GB-LUPIN PHARMACEUTICALS INC.-2018-02211

PATIENT
  Age: 58 Year
  Sex: Female
  Weight: 84 kg

DRUGS (12)
  1. SERTRALINE [Suspect]
     Active Substance: SERTRALINE HYDROCHLORIDE
     Indication: PRODUCT USED FOR UNKNOWN INDICATION
     Dosage: UNK
     Route: 065
     Dates: start: 20160420
  2. CLENIL MODULITE [Concomitant]
     Active Substance: BECLOMETHASONE DIPROPIONATE
     Indication: ILL-DEFINED DISORDER
     Dosage: INHALE 2 DOSES, BID
     Route: 065
     Dates: start: 20160420
  3. AMITRIPTYLINE HYDROCHLORIDE. [Concomitant]
     Active Substance: AMITRIPTYLINE HYDROCHLORIDE
     Indication: ILL-DEFINED DISORDER
     Dosage: TAKE ONE, QD
     Route: 065
     Dates: start: 20160420
  4. HYOSCINE BUTYLBROMIDE [Concomitant]
     Active Substance: BUTYLSCOPOLAMINE
     Indication: ILL-DEFINED DISORDER
     Dosage: TAKE 1-TWO 4 TIMES/DAY
     Route: 065
     Dates: start: 20171122
  5. ATORVASTATIN [Concomitant]
     Active Substance: ATORVASTATIN
     Indication: ILL-DEFINED DISORDER
     Dosage: TAKE ONE, QD
     Route: 065
     Dates: start: 20171005
  6. CLOBETASOL PROPIONATE. [Concomitant]
     Active Substance: CLOBETASOL PROPIONATE
     Indication: ILL-DEFINED DISORDER
     Dosage: APPLY 1-2 TIMES/DAY WHEN REQUIRED WHEN FLARES UP ()
     Route: 065
     Dates: start: 20160706
  7. COCODAMOL [Concomitant]
     Active Substance: ACETAMINOPHEN\CODEINE PHOSPHATE
     Indication: ILL-DEFINED DISORDER
     Dosage: TAKE 1 OR 2 4 TIMES/DAY
     Route: 065
     Dates: start: 20160420
  8. NITROFURANTOIN. [Concomitant]
     Active Substance: NITROFURANTOIN
     Indication: ILL-DEFINED DISORDER
     Dosage: UNK, QDS
     Route: 065
     Dates: start: 20170825, end: 20170901
  9. BALNEUM                            /00103901/ [Concomitant]
     Indication: ILL-DEFINED DISORDER
     Dosage: APPLY, BID
     Route: 065
     Dates: start: 20160420
  10. GAVISCON ADVANCE                   /00926503/ [Concomitant]
     Indication: ILL-DEFINED DISORDER
     Dosage: 5ML OR 10ML 4 TIMES/DAY
     Route: 065
     Dates: start: 20160420
  11. SALBUTAMOL [Concomitant]
     Active Substance: ALBUTEROL
     Indication: ILL-DEFINED DISORDER
     Dosage: INHALE 2 DOSES AS NEEDED
     Route: 065
     Dates: start: 20160420
  12. CETRABEN                           /01690401/ [Concomitant]
     Indication: ILL-DEFINED DISORDER
     Dosage: UNK, USE AS DIRECTED
     Route: 065
     Dates: start: 20160629

REACTIONS (1)
  - Diarrhoea [Recovered/Resolved]

NARRATIVE: CASE EVENT DATE: 20171122
